FAERS Safety Report 9718884 (Version 1)
Quarter: 2013Q4

REPORT INFORMATION
  Report Type: Spontaneous
  Country: US (occurrence: US)
  Receive Date: 20131127
  Receipt Date: 20131127
  Transmission Date: 20140711
  Serious: Yes (Other)
  Sender: FDA-Public Use
  Company Number: US-BAYER-2013-144187

PATIENT
  Age: 83 Year
  Sex: Female

DRUGS (4)
  1. BAYER ASPIRIN REGIMEN ADULT LOW STRENGTH [Suspect]
     Indication: ISCHAEMIC HEART DISEASE PROPHYLAXIS
     Dosage: 1 DF, QD
     Route: 048
  2. BAYER ASPIRIN REGIMEN ADULT LOW STRENGTH [Suspect]
     Indication: WOUND
  3. LISINOPRIL [Concomitant]
     Dosage: 5 MG
  4. TAZTIA [Concomitant]

REACTIONS (7)
  - Dry skin [Not Recovered/Not Resolved]
  - Local swelling [Not Recovered/Not Resolved]
  - Skin wound [Recovered/Resolved]
  - Wound secretion [Not Recovered/Not Resolved]
  - Lower extremity mass [Not Recovered/Not Resolved]
  - Pruritus generalised [Not Recovered/Not Resolved]
  - Off label use [None]
